FAERS Safety Report 16404070 (Version 1)
Quarter: 2019Q2

REPORT INFORMATION
  Report Type: Spontaneous
  Country: DE (occurrence: DE)
  Receive Date: 20190607
  Receipt Date: 20190607
  Transmission Date: 20190711
  Serious: Yes (Hospitalization)
  Sender: FDA-Public Use
  Company Number: DE-AUROBINDO-AUR-APL-2019-031946

PATIENT

DRUGS (4)
  1. RAMIPRIL. [Suspect]
     Active Substance: RAMIPRIL
     Indication: PRODUCT USED FOR UNKNOWN INDICATION
     Dosage: 2.5 MILLIGRAM, DAILY (1.25 MG, BID)
     Route: 065
  2. RAMIPRIL. [Suspect]
     Active Substance: RAMIPRIL
     Dosage: 2.5 MILLIGRAM, ONCE A DAY
     Route: 065
  3. RAMIPRIL HEXAL [Suspect]
     Active Substance: RAMIPRIL
     Dosage: 1.25 MILLIGRAM UNK (3-4 TIMES A DAY)
     Route: 065
  4. RAMIPRIL HEXAL [Suspect]
     Active Substance: RAMIPRIL
     Indication: PRODUCT USED FOR UNKNOWN INDICATION
     Dosage: UNK, PRN
     Route: 065

REACTIONS (7)
  - Wrong technique in product usage process [Unknown]
  - Vestibular disorder [Unknown]
  - Middle insomnia [Recovered/Resolved]
  - Faeces hard [Unknown]
  - Palpitations [Unknown]
  - Pollakiuria [Recovered/Resolved]
  - Dry mouth [Unknown]
